FAERS Safety Report 20569588 (Version 3)
Quarter: 2022Q2

REPORT INFORMATION
  Report Type: Spontaneous
  Country: AU (occurrence: AU)
  Receive Date: 20220309
  Receipt Date: 20220527
  Transmission Date: 20220721
  Serious: Yes (Other)
  Sender: FDA-Public Use
  Company Number: AU-NOVOPROD-896534

PATIENT
  Age: 55 Year
  Sex: Female
  Weight: 84 kg

DRUGS (9)
  1. OZEMPIC [Suspect]
     Active Substance: SEMAGLUTIDE
     Dosage: 2 MG, QW (1MG/DOSE/WEEK TAKING 2 AT TIME)
     Route: 065
     Dates: start: 20211213
  2. OZEMPIC [Suspect]
     Active Substance: SEMAGLUTIDE
     Dosage: 1.5 MG
     Route: 065
  3. OZEMPIC [Suspect]
     Active Substance: SEMAGLUTIDE
     Indication: Weight control
     Dosage: UNK
     Route: 065
     Dates: start: 202105
  4. PANTOPRAZOLE SODIUM [Concomitant]
     Active Substance: PANTOPRAZOLE SODIUM
     Dosage: 40 MG
     Route: 065
  5. METFORMIN [Concomitant]
     Active Substance: METFORMIN HYDROCHLORIDE
     Dosage: 1000 MG
     Route: 065
  6. ESTRADIOL [Concomitant]
     Active Substance: ESTRADIOL
     Dosage: 50UG
     Route: 065
  7. MIRENA [Concomitant]
     Active Substance: LEVONORGESTREL
     Dosage: 50 MG
     Route: 065
  8. ESTRIOL [Concomitant]
     Active Substance: ESTRIOL
     Dosage: 1 MG/G
     Route: 067
  9. PRISTIQ EXTENDED-RELEASE [Concomitant]
     Active Substance: DESVENLAFAXINE SUCCINATE
     Dosage: 100 MG
     Route: 065

REACTIONS (6)
  - Retinal haemorrhage [Unknown]
  - Retinal haemorrhage [Unknown]
  - Condition aggravated [Recovered/Resolved]
  - Off label use [Unknown]
  - Product use in unapproved indication [Unknown]
  - Product availability issue [Unknown]

NARRATIVE: CASE EVENT DATE: 20210501
